FAERS Safety Report 19162159 (Version 3)
Quarter: 2021Q2

REPORT INFORMATION
  Report Type: Report from Study
  Country: None (occurrence: FI)
  Receive Date: 20210421
  Receipt Date: 20210507
  Transmission Date: 20210717
  Serious: Yes (Hospitalization)
  Sender: FDA-Public Use
  Company Number: FI-ABBVIE-21K-055-3865521-00

PATIENT
  Sex: Male

DRUGS (2)
  1. DUODOPA [Suspect]
     Active Substance: CARBIDOPA\LEVODOPA
     Dosage: 24H TREATMENT
     Route: 050
     Dates: start: 202104, end: 20210415
  2. DUODOPA [Suspect]
     Active Substance: CARBIDOPA\LEVODOPA
     Indication: PRODUCT USED FOR UNKNOWN INDICATION
     Dosage: 16H TREATMENT
     Route: 050
     Dates: start: 202103, end: 202104

REACTIONS (7)
  - Delusional disorder, unspecified type [Unknown]
  - Confusional state [Unknown]
  - General physical health deterioration [Not Recovered/Not Resolved]
  - Therapeutic product effect incomplete [Unknown]
  - Cognitive disorder [Unknown]
  - Reduced facial expression [Unknown]
  - Insomnia [Unknown]
